FAERS Safety Report 9887411 (Version 1)
Quarter: 2014Q1

REPORT INFORMATION
  Report Type: Report from Study
  Country: CA (occurrence: CA)
  Receive Date: 20140211
  Receipt Date: 20140211
  Transmission Date: 20141002
  Serious: Yes (Hospitalization)
  Sender: FDA-Public Use
  Company Number: CA-JNJFOC-20140202683

PATIENT
  Age: 67 Year
  Sex: Female
  Weight: 106.2 kg

DRUGS (6)
  1. REMICADE [Suspect]
     Indication: COLITIS ULCERATIVE
     Route: 042
     Dates: start: 20121222
  2. REMICADE [Suspect]
     Indication: COLITIS ULCERATIVE
     Route: 042
     Dates: start: 201312
  3. FLURAZEPAM [Concomitant]
     Route: 065
  4. SYNTHROID [Concomitant]
     Route: 065
  5. CHLORTHALIDONE [Concomitant]
     Route: 065
  6. MULTIVITAMINS [Concomitant]
     Route: 065

REACTIONS (1)
  - Diarrhoea [Recovered/Resolved]
